FAERS Safety Report 9250630 (Version 1)
Quarter: 2013Q2

REPORT INFORMATION
  Report Type: Spontaneous
  Country: SE (occurrence: SE)
  Receive Date: 20130424
  Receipt Date: 20130424
  Transmission Date: 20140414
  Serious: Yes (Hospitalization)
  Sender: FDA-Public Use
  Company Number: SE-SANOFI-AVENTIS-2013SA041236

PATIENT
  Age: 71 Year
  Sex: Male

DRUGS (8)
  1. LASIX [Suspect]
     Indication: POLYURIA
     Dosage: DAILY DOSE - 20-40 MG
  2. OCTOSTIM [Concomitant]
     Indication: PROCEDURAL HAEMORRHAGE
     Dosage: DOSE:15 MICROGRAM(S)/MILLILITRE
     Dates: start: 20121205, end: 20121205
  3. SPIRONOLACTONE [Concomitant]
     Indication: POLYURIA
  4. AMLODIPINE [Concomitant]
     Indication: POLYURIA
  5. ENALAPRIL [Concomitant]
     Indication: HYPERTENSION
  6. SIMVASTATIN [Concomitant]
     Indication: HYPERCHOLESTEROLAEMIA
  7. SULFAMETOXAZOL [Concomitant]
  8. TRIMETHOPRIM [Concomitant]

REACTIONS (7)
  - Procedural haemorrhage [Recovered/Resolved]
  - Hyponatraemia [Recovered/Resolved]
  - Anxiety [Recovered/Resolved]
  - Vomiting [Recovered/Resolved]
  - Headache [Recovered/Resolved]
  - Urinary retention [Recovered/Resolved]
  - Hypotension [Recovered/Resolved]
